FAERS Safety Report 24726829 (Version 2)
Quarter: 2025Q1

REPORT INFORMATION
  Report Type: Report from Study
  Country: CN (occurrence: CN)
  Receive Date: 20241212
  Receipt Date: 20250113
  Transmission Date: 20250408
  Serious: Yes (Hospitalization)
  Sender: GILEAD
  Company Number: CN-GILEAD-2024-0695892

PATIENT
  Age: 44 Year
  Sex: Female

DRUGS (14)
  1. SACITUZUMAB GOVITECAN-HZIY [Suspect]
     Active Substance: SACITUZUMAB GOVITECAN-HZIY
     Indication: Invasive breast carcinoma
     Dosage: 540 MG, Q3WK, DAY 1, DAY 8 (ONCE EVERY 21 DAYS).
     Route: 041
     Dates: start: 20240807
  2. SACITUZUMAB GOVITECAN-HZIY [Suspect]
     Active Substance: SACITUZUMAB GOVITECAN-HZIY
     Indication: Breast cancer
     Dosage: 540 MG, Q3WK
     Route: 041
     Dates: start: 20240903
  3. SACITUZUMAB GOVITECAN-HZIY [Suspect]
     Active Substance: SACITUZUMAB GOVITECAN-HZIY
     Dosage: 540 MG, Q3WK
     Route: 041
     Dates: start: 20241102
  4. SACITUZUMAB GOVITECAN-HZIY [Suspect]
     Active Substance: SACITUZUMAB GOVITECAN-HZIY
     Route: 041
     Dates: start: 20241109
  5. SACITUZUMAB GOVITECAN-HZIY [Suspect]
     Active Substance: SACITUZUMAB GOVITECAN-HZIY
     Dosage: 540 MG, Q3WK, DAY1 AND DAY8, ONCE EVERY 21 DAYS
     Route: 041
     Dates: start: 20241123
  6. SACITUZUMAB GOVITECAN-HZIY [Suspect]
     Active Substance: SACITUZUMAB GOVITECAN-HZIY
     Route: 041
     Dates: start: 20241130
  7. SACITUZUMAB GOVITECAN-HZIY [Suspect]
     Active Substance: SACITUZUMAB GOVITECAN-HZIY
     Dosage: 540 MG, Q3WK
     Route: 041
     Dates: start: 20241216
  8. SACITUZUMAB GOVITECAN-HZIY [Suspect]
     Active Substance: SACITUZUMAB GOVITECAN-HZIY
     Route: 041
     Dates: start: 20250106
  9. TORIPALIMAB [Concomitant]
     Active Substance: TORIPALIMAB
     Indication: Invasive breast carcinoma
     Route: 041
     Dates: start: 20241102
  10. TORIPALIMAB [Concomitant]
     Active Substance: TORIPALIMAB
     Route: 041
     Dates: start: 20241123
  11. TORIPALIMAB [Concomitant]
     Active Substance: TORIPALIMAB
     Route: 041
     Dates: start: 20241130
  12. TORIPALIMAB [Concomitant]
     Active Substance: TORIPALIMAB
     Dosage: 240 MG, Q3WK
     Route: 041
     Dates: start: 20241216
  13. TORIPALIMAB [Concomitant]
     Active Substance: TORIPALIMAB
     Dosage: 240 MG, Q3WK, DAY 1, ONCE EVERY 21 DAYS
     Route: 041
     Dates: start: 20250106
  14. ZOLEDRONIC ACID [Concomitant]
     Active Substance: ZOLEDRONIC ACID
     Indication: Bone disorder
     Route: 041

REACTIONS (4)
  - Musculoskeletal chest pain [Unknown]
  - Back pain [Unknown]
  - Chest wall rigidity [Unknown]
  - Pruritus [Unknown]

NARRATIVE: CASE EVENT DATE: 20241101
